FAERS Safety Report 11697661 (Version 1)
Quarter: 2015Q4

REPORT INFORMATION
  Report Type: Spontaneous
  Country: US (occurrence: US)
  Receive Date: 20151104
  Receipt Date: 20151104
  Transmission Date: 20160304
  Serious: No
  Sender: FDA-Public Use
  Company Number: US-PFIZER INC-2015370102

PATIENT
  Age: 63 Year
  Sex: Female
  Weight: 78 kg

DRUGS (10)
  1. BUPROPION. [Concomitant]
     Active Substance: BUPROPION
     Indication: DEPRESSION
     Dosage: 150 MG, 2X/DAY
  2. NICOTROL [Suspect]
     Active Substance: NICOTINE
     Indication: SMOKING CESSATION THERAPY
     Dosage: 10 MG CARTRIDGE WITH 4 MG DELIVERED, INHALED, USES OFTEN
     Route: 055
  3. GEODON [Concomitant]
     Active Substance: ZIPRASIDONE HYDROCHLORIDE\ZIPRASIDONE MESYLATE
     Indication: PSYCHOTIC DISORDER
     Dosage: 60 MG, TWO AT NIGHT
  4. TIZANIDINE. [Concomitant]
     Active Substance: TIZANIDINE
     Indication: AFFECTIVE DISORDER
     Dosage: 30 MG, 1X/DAY, ONE AT NIGHT
  5. HYDROXYCHLOROQUINE [Concomitant]
     Active Substance: HYDROXYCHLOROQUINE
     Indication: SYSTEMIC LUPUS ERYTHEMATOSUS
     Dosage: 200 MG, 2X/DAY
  6. TRAZODONE [Concomitant]
     Active Substance: TRAZODONE HYDROCHLORIDE
     Indication: DEPRESSION
     Dosage: 300 MG, DAILY (150 MG, TWO PER DAY)
  7. RISEDRONATE [Concomitant]
     Active Substance: RISEDRONATE SODIUM
     Dosage: UNK
  8. SYNTHROID [Concomitant]
     Active Substance: LEVOTHYROXINE SODIUM
     Indication: THYROID DISORDER
     Dosage: 150 MG, 1X/DAY, TAKES ONE IN THE MORNING
  9. PANTOPRAZOLE [Concomitant]
     Active Substance: PANTOPRAZOLE SODIUM
     Indication: GASTROOESOPHAGEAL REFLUX DISEASE
     Dosage: 40 MG, 2X/DAY
  10. RANITIDINE [Concomitant]
     Active Substance: RANITIDINE\RANITIDINE HYDROCHLORIDE
     Indication: ULCER
     Dosage: 150 MG, 2X/DAY

REACTIONS (2)
  - Drug ineffective [Unknown]
  - Product quality issue [Unknown]
